FAERS Safety Report 5859811-8 (Version None)
Quarter: 2008Q3

REPORT INFORMATION
  Report Type: 
  Country: None (occurrence: None)
  Receive Date: 20080827
  Receipt Date: 20080819
  Transmission Date: 20090109
  Serious: Yes (Hospitalization)
  Sender: FDA-Public Use
  Company Number: FR-MERCK-0805FRA00042

PATIENT
  Age: 60 Year
  Sex: Female

DRUGS (5)
  1. NOROXIN [Suspect]
     Indication: URINARY TRACT INFECTION
     Route: 048
     Dates: start: 20080329, end: 20080401
  2. PREDNISONE [Concomitant]
     Indication: PEMPHIGUS
     Route: 048
     Dates: start: 20060601, end: 20080401
  3. PREDNISONE [Concomitant]
     Route: 048
     Dates: start: 20080402
  4. PSEUDOEPHEDRINE HYDROCHLORIDE AND TRIPROLIDINE HYDROCHLORIDE [Concomitant]
     Route: 047
  5. CROMOLYN SODIUM [Concomitant]
     Route: 047

REACTIONS (1)
  - PEMPHIGUS [None]
